FAERS Safety Report 13648029 (Version 1)
Quarter: 2017Q2

REPORT INFORMATION
  Report Type: Spontaneous
  Country: US (occurrence: US)
  Receive Date: 20170613
  Receipt Date: 20170613
  Transmission Date: 20170830
  Serious: Yes (Other)
  Sender: FDA-Public Use
  Company Number: US-PFIZER INC-2017252600

PATIENT
  Age: 44 Year
  Sex: Male
  Weight: 111 kg

DRUGS (5)
  1. METOPROLOL. [Concomitant]
     Active Substance: METOPROLOL
     Indication: SYNCOPE
     Dosage: 50MG TABLET, 75MG TWICE A DAY
  2. NORPACE CR [Suspect]
     Active Substance: DISOPYRAMIDE PHOSPHATE
     Indication: SYNCOPE
     Dosage: 150MG CAPSULES, 2 CAPSULES TWICE DAILY
     Route: 048
     Dates: start: 1991, end: 20170604
  3. ATORVASTATIN [Concomitant]
     Active Substance: ATORVASTATIN
     Indication: BLOOD CHOLESTEROL ABNORMAL
     Dosage: 40 MG, DAILY
  4. NORPACE [Suspect]
     Active Substance: DISOPYRAMIDE PHOSPHATE
     Indication: SYNCOPE
     Dosage: 150MG CAPSULES, 1 EVERY 6 HOURS
  5. TOVIAZ [Concomitant]
     Active Substance: FESOTERODINE FUMARATE
     Indication: URINARY INCONTINENCE
     Dosage: 4 MG, 1X/DAY

REACTIONS (3)
  - Ventricular arrhythmia [Unknown]
  - Prostate cancer [Unknown]
  - Cardiac arrest [Unknown]

NARRATIVE: CASE EVENT DATE: 1991
